FAERS Safety Report 16290254 (Version 1)
Quarter: 2019Q2

REPORT INFORMATION
  Report Type: Spontaneous
  Country: US (occurrence: US)
  Receive Date: 20190508
  Receipt Date: 20190508
  Transmission Date: 20190711
  Serious: Yes (Other)
  Sender: FDA-Public Use
  Company Number: None

PATIENT
  Age: 56 Year
  Sex: Female

DRUGS (1)
  1. CYMBALTA [Suspect]
     Active Substance: DULOXETINE HYDROCHLORIDE
     Indication: DEPRESSION
     Dates: start: 20130401, end: 20130630

REACTIONS (6)
  - Food craving [None]
  - Weight increased [None]
  - Hyperhidrosis [None]
  - Depression [None]
  - Anxiety [None]
  - Abnormal dreams [None]

NARRATIVE: CASE EVENT DATE: 20130401
